FAERS Safety Report 9941724 (Version 2)
Quarter: 2014Q1

REPORT INFORMATION
  Report Type: Report from Study
  Country: US (occurrence: US)
  Receive Date: 20140303
  Receipt Date: 20140303
  Transmission Date: 20141002
  Serious: No
  Sender: FDA-Public Use
  Company Number: US-ABBVIE-13P-163-1032876-00

PATIENT
  Sex: Female

DRUGS (2)
  1. HUMIRA [Suspect]
     Indication: CROHN^S DISEASE
     Dosage: ONCE = 4 PENS
     Route: 058
     Dates: start: 201211
  2. HUMIRA [Suspect]
     Dosage: DAY 15 = 2 PENS
     Route: 058

REACTIONS (1)
  - Influenza [Unknown]
